FAERS Safety Report 18898632 (Version 1)
Quarter: 2021Q1

REPORT INFORMATION
  Report Type: Spontaneous
  Country: NL (occurrence: NL)
  Receive Date: 20210216
  Receipt Date: 20210216
  Transmission Date: 20210420
  Serious: Yes (Other)
  Sender: FDA-Public Use
  Company Number: NL-REGENERON PHARMACEUTICALS, INC.-2021-23178

PATIENT

DRUGS (1)
  1. EYLEA [Suspect]
     Active Substance: AFLIBERCEPT
     Indication: RETINAL VEIN OCCLUSION
     Dosage: 1 DF, ONCE; RIGHT  EYE; TOTAL OF 32 INJECTIONS PRIOR TO THE EVENT
     Route: 031
     Dates: start: 20201014, end: 20201014

REACTIONS (1)
  - Toxic anterior segment syndrome [Recovered/Resolved]

NARRATIVE: CASE EVENT DATE: 20201023
